FAERS Safety Report 6262167-2 (Version None)
Quarter: 2009Q3

REPORT INFORMATION
  Report Type: 
  Country: None (occurrence: None)
  Receive Date: 20090709
  Receipt Date: 20090630
  Transmission Date: 20100115
  Serious: Yes (Disabling)
  Sender: FDA-Public Use
  Company Number: FR-ABBOTT-09P-056-0565418-00

PATIENT
  Age: 28 Year
  Sex: Female

DRUGS (1)
  1. ENANTONE LP 11.25 MG PREP INJECTION [Suspect]
     Indication: ENDOMETRIOSIS
     Route: 050
     Dates: start: 20080901, end: 20081215

REACTIONS (16)
  - ASTHENOPIA [None]
  - BLOOD PRESSURE DECREASED [None]
  - BREAST ATROPHY [None]
  - DIARRHOEA [None]
  - DYSPHAGIA [None]
  - ENDOMETRIOSIS [None]
  - FATIGUE [None]
  - HEADACHE [None]
  - HOT FLUSH [None]
  - HYPOAESTHESIA [None]
  - INSOMNIA [None]
  - MOOD SWINGS [None]
  - MUSCULOSKELETAL STIFFNESS [None]
  - NAUSEA [None]
  - PAROSMIA [None]
  - WEIGHT DECREASED [None]
